FAERS Safety Report 9257296 (Version 2)
Quarter: 2014Q1

REPORT INFORMATION
  Report Type: Spontaneous
  Country: US (occurrence: None)
  Receive Date: 20121212
  Receipt Date: 20130314
  Transmission Date: 20141002
  Serious: No
  Sender: FDA-Public Use
  Company Number: 1208USA008288

PATIENT
  Age: 67 Year
  Sex: Female

DRUGS (3)
  1. REBETOL [Suspect]
     Indication: HEPATITIS C
     Route: 048
     Dates: start: 20120301, end: 20130131
  2. VICTRELIS [Suspect]
     Indication: HEPATITIS C
     Route: 048
     Dates: start: 20120301, end: 20130131
  3. PEGASYS [Suspect]
     Indication: HEPATITIS C
     Dates: start: 20120302, end: 20130125

REACTIONS (11)
  - Red blood cell count decreased [None]
  - Alopecia [None]
  - Hair texture abnormal [None]
  - Memory impairment [None]
  - Decreased appetite [None]
  - Mouth ulceration [None]
  - Oral pain [None]
  - Nausea [None]
  - Pruritus [None]
  - Haemoglobin decreased [None]
  - Anaemia [None]
